FAERS Safety Report 21028251 (Version 3)
Quarter: 2022Q3

REPORT INFORMATION
  Report Type: Spontaneous
  Country: GB (occurrence: GB)
  Receive Date: 20220630
  Receipt Date: 20220802
  Transmission Date: 20221026
  Serious: Yes (Hospitalization, Other)
  Sender: FDA-Public Use
  Company Number: GB-NOVARTISPH-NVSC2022GB148563

PATIENT
  Age: 70 Year
  Sex: Male
  Weight: 90 kg

DRUGS (28)
  1. DICLOFENAC [Suspect]
     Active Substance: DICLOFENAC
     Indication: Plasma cell myeloma
     Dosage: 40 MG, QW (1 TIME EVERY 1 WEEK)
     Route: 048
     Dates: start: 20161130
  2. DICLOFENAC [Suspect]
     Active Substance: DICLOFENAC
     Dosage: 6 MG
     Route: 065
  3. DICLOFENAC [Suspect]
     Active Substance: DICLOFENAC
     Dosage: 60 MG
     Route: 048
  4. REVLIMID [Suspect]
     Active Substance: LENALIDOMIDE
     Indication: Plasma cell myeloma
     Dosage: 25 MG, (525 MG, 28D (1 TIME EVERY 28 DAYS))
     Route: 048
     Dates: start: 20161130
  5. REVLIMID [Suspect]
     Active Substance: LENALIDOMIDE
     Dosage: 25 MG, 28D
     Route: 048
     Dates: start: 20161130, end: 20161219
  6. REVLIMID [Suspect]
     Active Substance: LENALIDOMIDE
     Dosage: UNK
     Route: 065
     Dates: start: 20161214, end: 20161214
  7. REVLIMID [Suspect]
     Active Substance: LENALIDOMIDE
     Dosage: 19 MG
     Route: 065
  8. DARZALEX [Suspect]
     Active Substance: DARATUMUMAB
     Indication: Plasma cell myeloma
     Dosage: 1480 MG, QW
     Route: 042
     Dates: start: 20161130, end: 20161214
  9. DEXAMETHASONE [Suspect]
     Active Substance: DEXAMETHASONE
     Indication: Plasma cell myeloma
     Dosage: 40 MG, QW
     Route: 042
     Dates: start: 20161130, end: 20161214
  10. DEXAMETHASONE [Suspect]
     Active Substance: DEXAMETHASONE
     Dosage: 40 MG, QD
     Route: 042
     Dates: start: 20161214, end: 20161214
  11. ALLOPURINOL [Concomitant]
     Active Substance: ALLOPURINOL
     Indication: Chemotherapy
     Dosage: 300 MG
     Route: 065
     Dates: start: 20161130
  12. AMOXICILLIN [Concomitant]
     Active Substance: AMOXICILLIN
     Indication: Product used for unknown indication
     Dosage: 3 G (3 GRAM)
     Route: 065
     Dates: start: 20170312, end: 20180316
  13. CHLORPHENIRAMINE MALEATE [Concomitant]
     Active Substance: CHLORPHENIRAMINE MALEATE
     Indication: Flushing
     Dosage: 10 MG
     Route: 065
     Dates: start: 20170309, end: 20170309
  14. CIPROFLOXACIN [Concomitant]
     Active Substance: CIPROFLOXACIN
     Indication: Product used for unknown indication
     Dosage: 500 MG, QD (1000 MILLIGRAM)
     Route: 065
     Dates: start: 20170316, end: 20170606
  15. AMOXICILLIN\CLAVULANATE POTASSIUM [Concomitant]
     Active Substance: AMOXICILLIN\CLAVULANATE POTASSIUM
     Indication: Prophylaxis
     Dosage: 1875 MG
     Route: 065
     Dates: start: 20170316, end: 20171202
  16. GENTAMICIN [Concomitant]
     Active Substance: GENTAMICIN
     Indication: Product used for unknown indication
     Dosage: 560 MG
     Route: 065
     Dates: start: 20170312, end: 20180515
  17. HYDROCORTISONE [Concomitant]
     Active Substance: HYDROCORTISONE
     Indication: Flushing
     Dosage: 100 MG
     Route: 065
     Dates: start: 20170309, end: 20170309
  18. METRONIDAZOLE [Concomitant]
     Active Substance: METRONIDAZOLE
     Indication: Product used for unknown indication
     Dosage: 1500 MG
     Route: 065
     Dates: start: 20170312, end: 20180315
  19. OMEPRAZOLE [Concomitant]
     Active Substance: OMEPRAZOLE
     Indication: Plasma cell myeloma
     Dosage: 20 MG
     Route: 065
     Dates: start: 20161130
  20. TAMSULOSIN [Concomitant]
     Active Substance: TAMSULOSIN
     Indication: Urinary retention
     Dosage: 400 UG
     Route: 065
     Dates: start: 20170313
  21. PIPERACILLIN SODIUM\TAZOBACTAM SODIUM [Concomitant]
     Active Substance: PIPERACILLIN SODIUM\TAZOBACTAM SODIUM
     Indication: Pyrexia
     Dosage: 4.5 G
     Route: 065
     Dates: start: 20170312, end: 20180312
  22. ZOMETA [Concomitant]
     Active Substance: ZOLEDRONIC ACID
     Indication: Product used for unknown indication
     Dosage: UNK
     Route: 065
     Dates: start: 20170113
  23. CARBOHYDRATES [Concomitant]
     Active Substance: CARBOHYDRATES
     Indication: Decreased appetite
     Dosage: UNK
     Route: 065
  24. ELECTROLYTES NOS [Concomitant]
     Active Substance: ELECTROLYTES NOS
     Indication: Decreased appetite
     Dosage: UNK
     Route: 065
  25. FATTY ACIDS NOS [Concomitant]
     Indication: Decreased appetite
     Dosage: UNK
     Route: 065
  26. MINERALS NOS [Concomitant]
     Active Substance: MINERALS
     Indication: Decreased appetite
     Dosage: UNK
     Route: 065
  27. PROTEIN [Concomitant]
     Active Substance: PROTEIN
     Indication: Decreased appetite
     Dosage: UNK
     Route: 065
  28. VITAMINS NOS [Concomitant]
     Active Substance: VITAMINS
     Indication: Decreased appetite
     Dosage: UNK
     Route: 065

REACTIONS (5)
  - Back pain [Recovering/Resolving]
  - Hypoaesthesia [Not Recovered/Not Resolved]
  - Diverticular perforation [Recovered/Resolved]
  - Pulmonary embolism [Recovered/Resolved]
  - Intentional product use issue [Unknown]

NARRATIVE: CASE EVENT DATE: 20161130
